FAERS Safety Report 20445708 (Version 1)
Quarter: 2022Q1

REPORT INFORMATION
  Report Type: Spontaneous
  Country: FR (occurrence: FR)
  Receive Date: 20220208
  Receipt Date: 20220208
  Transmission Date: 20220424
  Serious: Yes (Congenital Anomaly, Other)
  Sender: FDA-Public Use
  Company Number: FR-ABBVIE-22K-056-4264716-00

PATIENT
  Sex: Male
  Weight: 2.3 kg

DRUGS (2)
  1. VALPROATE SODIUM [Suspect]
     Active Substance: VALPROATE SODIUM
     Indication: Maternal exposure timing unspecified
     Route: 064
  2. FOLIC ACID [Concomitant]
     Active Substance: FOLIC ACID
     Indication: Product used for unknown indication
     Dates: start: 2002

REACTIONS (26)
  - Dysmorphism [Not Recovered/Not Resolved]
  - Disturbance in attention [Unknown]
  - Attention deficit hyperactivity disorder [Not Recovered/Not Resolved]
  - Personal relationship issue [Unknown]
  - Autism spectrum disorder [Not Recovered/Not Resolved]
  - Neurodevelopmental disorder [Not Recovered/Not Resolved]
  - Hypotonia [Unknown]
  - Astigmatism [Unknown]
  - Hypermetropia [Unknown]
  - Learning disorder [Not Recovered/Not Resolved]
  - Asthma [Unknown]
  - Disturbance in attention [Unknown]
  - Cyst [Unknown]
  - Epilepsy [Unknown]
  - Dyspraxia [Unknown]
  - Behaviour disorder [Unknown]
  - Fatigue [Unknown]
  - Congenital torticollis [Unknown]
  - Anxiety [Unknown]
  - Communication disorder [Unknown]
  - Tendon laxity [Unknown]
  - Foot deformity [Unknown]
  - Otitis media [Unknown]
  - Autism spectrum disorder [Unknown]
  - Hypotonia [Unknown]
  - Foetal exposure during pregnancy [Unknown]

NARRATIVE: CASE EVENT DATE: 20040302
